FAERS Safety Report 7705436-9 (Version None)
Quarter: 2011Q3

REPORT INFORMATION
  Report Type: 
  Country: None (occurrence: None)
  Receive Date: 20110818
  Receipt Date: 20110802
  Transmission Date: 20111222
  Serious: Yes (Death, Other)
  Sender: FDA-Public Use
  Company Number: 2011MA010861

PATIENT
  Age: 48 Year
  Sex: Male

DRUGS (6)
  1. FEVERALL [Suspect]
     Indication: DRUG ABUSE
  2. DHM (NO PREF. NAME) [Suspect]
     Indication: DRUG ABUSE
  3. CLOZAPINE [Suspect]
     Indication: DRUG ABUSE
  4. DIHYDROCODEINE BITARTRATE INJ [Suspect]
     Indication: DRUG ABUSE
  5. DHC6G (NO PREF. NAME) [Suspect]
     Indication: DRUG ABUSE
  6. DHM3G (NO PREF. NAME) [Suspect]
     Indication: DRUG ABUSE

REACTIONS (1)
  - TOXICITY TO VARIOUS AGENTS [None]
